FAERS Safety Report 9607719 (Version 4)
Quarter: 2013Q4

REPORT INFORMATION
  Report Type: Spontaneous
  Country: US (occurrence: US)
  Receive Date: 20131009
  Receipt Date: 20131129
  Transmission Date: 20140711
  Serious: Yes (Other)
  Sender: FDA-Public Use
  Company Number: US-AMGEN-USASP2013070092

PATIENT
  Age: 65 Year
  Sex: Male
  Weight: 147 kg

DRUGS (12)
  1. PROCRIT [Suspect]
     Indication: RENAL FAILURE CHRONIC
     Dosage: 60000 UNIT, QWK
     Route: 058
  2. PROCRIT [Suspect]
     Indication: NEPHROGENIC ANAEMIA
  3. ALLOPURINOL [Concomitant]
     Dosage: 150 MG, UNK
  4. METOPROLOL [Concomitant]
     Dosage: 12.5 MG, UNK
  5. SPIRIVA [Concomitant]
     Dosage: UNK
  6. COUMADIN                           /00014802/ [Concomitant]
     Dosage: UNK
  7. AMBIEN [Concomitant]
     Dosage: 10 MG, UNK
  8. TESTOSTERONE [Concomitant]
     Dosage: UNK
  9. FOLIC ACID [Concomitant]
     Dosage: 1 MG, UNK
  10. PREDNISONE [Concomitant]
     Dosage: 20 MG, UNK
  11. PRISTIQ [Concomitant]
     Dosage: 50 MG, UNK
  12. EXJADE [Concomitant]
     Dosage: UNK

REACTIONS (6)
  - Anaemia [Unknown]
  - Blood product transfusion dependent [Not Recovered/Not Resolved]
  - Aplasia pure red cell [Unknown]
  - Anti-erythropoietin antibody positive [Recovered/Resolved]
  - Reticulocyte count decreased [Unknown]
  - Therapeutic response decreased [Unknown]
